FAERS Safety Report 9892394 (Version 2)
Quarter: 2014Q1

REPORT INFORMATION
  Report Type: Spontaneous
  Country: AT (occurrence: AT)
  Receive Date: 20140212
  Receipt Date: 20140212
  Transmission Date: 20141002
  Serious: Yes (Death, Other)
  Sender: FDA-Public Use
  Company Number: AT-PFIZER INC-2014037741

PATIENT
  Age: 71 Year
  Sex: Female

DRUGS (2)
  1. METHYLPREDNISOLONE SODIUM SUCCINATE [Suspect]
     Indication: ENDOCRINE OPHTHALMOPATHY
     Dosage: 1 G, DAILY
     Route: 042
  2. METHIMAZOLE [Concomitant]
     Indication: BASEDOW^S DISEASE
     Dosage: 5 MG DAILY

REACTIONS (1)
  - Hepatic failure [Fatal]
